FAERS Safety Report 5064818-7 (Version None)
Quarter: 2006Q3

REPORT INFORMATION
  Report Type: 
  Country: None (occurrence: None)
  Receive Date: 20060728
  Receipt Date: 20040608
  Transmission Date: 20061208
  Serious: Yes (Hospitalization, Disabling, Other)
  Sender: FDA-Public Use
  Company Number: PHHO2004GB08181

PATIENT
  Age: 40 Year
  Sex: Female
  Weight: 50.9 kg

DRUGS (3)
  1. ERL080 [Suspect]
     Indication: RENAL TRANSPLANT
     Dosage: UNKNOWN
     Route: 048
     Dates: start: 20040326, end: 20040412
  2. ERL080 [Suspect]
     Dosage: 720 MG, QD
     Route: 048
     Dates: start: 20040413, end: 20040517
  3. NEORAL [Suspect]
     Indication: RENAL TRANSPLANT
     Dosage: VARIABLE DOSES
     Route: 048
     Dates: start: 20040326

REACTIONS (11)
  - BACK PAIN [None]
  - BLOOD CREATININE INCREASED [None]
  - BLOOD TEST ABNORMAL [None]
  - CYTOMEGALOVIRUS INFECTION [None]
  - DRUG INEFFECTIVE [None]
  - FATIGUE [None]
  - MALAISE [None]
  - NEUTROPENIA [None]
  - RENAL IMPAIRMENT [None]
  - URINARY TRACT INFECTION [None]
  - WHITE BLOOD CELL COUNT DECREASED [None]
